FAERS Safety Report 5742033-9 (Version None)
Quarter: 2008Q2

REPORT INFORMATION
  Report Type: 
  Country: None (occurrence: None)
  Receive Date: 20080519
  Receipt Date: 20080513
  Transmission Date: 20081010
  Serious: Yes (Hospitalization)
  Sender: FDA-Public Use
  Company Number: US-MERCK-0805USA02795

PATIENT
  Age: 45 Year
  Sex: Male

DRUGS (8)
  1. PRINZIDE [Suspect]
     Indication: HYPERTENSION
     Route: 048
     Dates: start: 20060424, end: 20061201
  2. KALETRA [Suspect]
     Indication: HIV INFECTION
     Route: 048
     Dates: start: 20051229, end: 20061228
  3. VALACYCLOVIR HYDROCHLORIDE [Suspect]
     Route: 065
     Dates: end: 20061201
  4. TRUVADA [Suspect]
     Indication: HIV INFECTION
     Route: 048
     Dates: start: 20051229, end: 20061228
  5. PAROXETINE HYDROCHLORIDE [Concomitant]
     Indication: DEPRESSION
     Route: 065
     Dates: start: 20060130
  6. PROSCAR [Concomitant]
     Indication: BENIGN PROSTATIC HYPERPLASIA
     Route: 048
     Dates: start: 20060130
  7. HYDROXYZINE PAMOATE [Concomitant]
     Indication: ANXIETY
     Route: 048
     Dates: start: 20061029
  8. LANSOPRAZOLE [Concomitant]
     Indication: GASTROOESOPHAGEAL REFLUX DISEASE
     Route: 048
     Dates: start: 20060130

REACTIONS (2)
  - ORAL INTAKE REDUCED [None]
  - RENAL FAILURE ACUTE [None]
